FAERS Safety Report 4994823-8 (Version None)
Quarter: 2006Q2

REPORT INFORMATION
  Report Type: 
  Country: None (occurrence: None)
  Receive Date: 20060508
  Receipt Date: 20050811
  Transmission Date: 20061013
  Serious: Yes (Hospitalization, Other)
  Sender: FDA-Public Use
  Company Number: PHEH2005US08927

PATIENT
  Age: 44 Year
  Sex: Male

DRUGS (17)
  1. ZOFRAN [Concomitant]
  2. PERCOCET [Concomitant]
  3. VINCRISTINE [Concomitant]
     Indication: MULTIPLE MYELOMA
  4. DOXIL [Concomitant]
     Indication: MULTIPLE MYELOMA
  5. THALIDOMIDE [Concomitant]
     Indication: MULTIPLE MYELOMA
  6. DECADRON [Concomitant]
     Indication: MULTIPLE MYELOMA
  7. INSULIN [Concomitant]
  8. ASPIRIN [Concomitant]
     Dosage: 20 MG, BID
  9. ACYCLOVIR [Concomitant]
  10. SENOKOT [Concomitant]
  11. VICODIN [Concomitant]
  12. NEPHROCAPS [Concomitant]
  13. CYTOXAN [Concomitant]
  14. LOVENOX [Concomitant]
  15. AREDIA [Suspect]
     Indication: HYPERCALCAEMIA
     Dosage: 30 MG, QMO
     Route: 042
     Dates: start: 20020805
  16. AREDIA [Suspect]
     Dosage: 100 MG, QMO
     Route: 042
     Dates: end: 20031001
  17. ZOMETA [Suspect]

REACTIONS (36)
  - ANAEMIA [None]
  - ANXIETY [None]
  - ARTHRALGIA [None]
  - ARTHRITIS BACTERIAL [None]
  - ARTHROSCOPIC SURGERY [None]
  - BLOOD BICARBONATE DECREASED [None]
  - BLOOD CALCIUM DECREASED [None]
  - BLOOD CREATININE INCREASED [None]
  - BLOOD PHOSPHORUS INCREASED [None]
  - BONE PAIN [None]
  - CHEST PAIN [None]
  - DEPRESSION [None]
  - DIZZINESS [None]
  - FEBRILE NEUTROPENIA [None]
  - GOUT [None]
  - HAEMODIALYSIS [None]
  - JOINT SWELLING [None]
  - LEUKAEMIA PLASMACYTIC [None]
  - MALIGNANT NEOPLASM PROGRESSION [None]
  - METASTASIS [None]
  - MYELOMA RECURRENCE [None]
  - OSTEOLYSIS [None]
  - OSTEONECROSIS [None]
  - OSTEOPENIA [None]
  - PACKED RED BLOOD CELL TRANSFUSION [None]
  - PLASMAPHERESIS [None]
  - PLATELET TRANSFUSION [None]
  - RADIOTHERAPY [None]
  - RASH [None]
  - RENAL FAILURE [None]
  - STAPHYLOCOCCAL INFECTION [None]
  - SUICIDAL IDEATION [None]
  - THROMBOCYTOPENIA [None]
  - THROMBOSIS [None]
  - VISUAL DISTURBANCE [None]
  - VISUAL FIELD DEFECT [None]
